FAERS Safety Report 17817605 (Version 1)
Quarter: 2020Q2

REPORT INFORMATION
  Report Type: Spontaneous
  Country: DE (occurrence: DE)
  Receive Date: 20200522
  Receipt Date: 20200522
  Transmission Date: 20200714
  Serious: Yes (Hospitalization)
  Sender: FDA-Public Use
  Company Number: DE-PFIZER INC-2020200951

PATIENT
  Age: 79 Year
  Sex: Female

DRUGS (4)
  1. LEVOTHYROXINUM NATRICUM [Concomitant]
     Dosage: 50 UG, 1X/DAY  (50 UG, 1-0-0-0)
  2. SERTRALINE HCL [Suspect]
     Active Substance: SERTRALINE HYDROCHLORIDE
     Dosage: 25 MG, 1X/DAY (25 MG, 0-0-1-0)
  3. DEKRISTOLMIN [Concomitant]
     Active Substance: CHOLECALCIFEROL
     Dosage: 20000 IU, WEEKLY (1-0-0-0)
  4. OLMETEC [Concomitant]
     Active Substance: OLMESARTAN MEDOXOMIL
     Dosage: 20 MG, 1X/DAY (20 MG, 1-0-0-0)

REACTIONS (7)
  - General physical health deterioration [Unknown]
  - Depressed mood [Unknown]
  - Restless legs syndrome [Unknown]
  - Gamma-glutamyltransferase increased [Unknown]
  - Restlessness [Unknown]
  - Burning sensation [Unknown]
  - Tinnitus [Unknown]

NARRATIVE: CASE EVENT DATE: 20191230
